FAERS Safety Report 6787357-1 (Version None)
Quarter: 2010Q2

REPORT INFORMATION
  Report Type: 
  Country: None (occurrence: None)
  Receive Date: 20100623
  Receipt Date: 20061204
  Transmission Date: 20101027
  Serious: No
  Sender: FDA-Public Use
  Company Number: US-PFIZER INC-2006116559

PATIENT
  Sex: Female
  Weight: 27.67 kg

DRUGS (2)
  1. GENOTROPIN [Suspect]
     Indication: BLOOD GROWTH HORMONE DECREASED
     Dates: start: 20041215, end: 20060925
  2. LEVOTHYROXINE SODIUM [Concomitant]

REACTIONS (5)
  - DIPLOPIA [None]
  - DRUG ADMINISTRATION ERROR [None]
  - MEMORY IMPAIRMENT [None]
  - OVERDOSE [None]
  - VISUAL IMPAIRMENT [None]
